FAERS Safety Report 9414529 (Version 28)
Quarter: 2016Q2

REPORT INFORMATION
  Report Type: Report from Study
  Country: CA (occurrence: CA)
  Receive Date: 20130723
  Receipt Date: 20160610
  Transmission Date: 20160815
  Serious: Yes (Other)
  Sender: FDA-Public Use
  Company Number: CA-ROCHE-1251684

PATIENT
  Age: 33 Year
  Sex: Female
  Weight: 61 kg

DRUGS (11)
  1. TAXOTERE [Suspect]
     Active Substance: DOCETAXEL
     Indication: BREAST CANCER STAGE IV
     Route: 042
     Dates: start: 20130422
  2. PERJETA [Suspect]
     Active Substance: PERTUZUMAB
     Indication: BREAST CANCER STAGE IV
     Dosage: LOADING DOSE
     Route: 042
     Dates: start: 20130606
  3. HERCEPTIN [Suspect]
     Active Substance: TRASTUZUMAB
     Route: 042
     Dates: start: 20130718
  4. XGEVA [Concomitant]
     Active Substance: DENOSUMAB
     Dosage: STARTED  AFTER TRASTUZUMAB-DO NOT REMEMBER THE DATE
     Route: 065
  5. HERCEPTIN [Suspect]
     Active Substance: TRASTUZUMAB
     Indication: BREAST CANCER STAGE IV
     Route: 042
     Dates: start: 20130422
  6. CORTISONE [Concomitant]
     Active Substance: CORTISONE\HYDROCORTISONE
     Route: 065
     Dates: end: 201305
  7. MORPHINE [Concomitant]
     Active Substance: MORPHINE
     Route: 065
     Dates: end: 201304
  8. PERJETA [Suspect]
     Active Substance: PERTUZUMAB
     Dosage: MAINTENANCE DOSE
     Route: 042
     Dates: start: 20130627, end: 20151028
  9. TAMOXIFEN [Concomitant]
     Active Substance: TAMOXIFEN
     Indication: BREAST CANCER STAGE IV
     Route: 042
     Dates: end: 20150729
  10. TAXOTERE [Suspect]
     Active Substance: DOCETAXEL
     Indication: BREAST CANCER
  11. ZOLADEX [Concomitant]
     Active Substance: GOSERELIN ACETATE
     Route: 065
     Dates: start: 20150720

REACTIONS (34)
  - Dizziness [Not Recovered/Not Resolved]
  - Pruritus [Not Recovered/Not Resolved]
  - Stress [Unknown]
  - Disturbance in attention [Not Recovered/Not Resolved]
  - Rash [Unknown]
  - Neuropathy peripheral [Recovering/Resolving]
  - Hypoaesthesia [Not Recovered/Not Resolved]
  - Nasopharyngitis [Not Recovered/Not Resolved]
  - Hypoaesthesia [Unknown]
  - Skin burning sensation [Not Recovered/Not Resolved]
  - Breast disorder [Unknown]
  - Nasopharyngitis [Recovered/Resolved]
  - Nasopharyngitis [Recovering/Resolving]
  - Paraesthesia [Unknown]
  - Diarrhoea [Recovered/Resolved]
  - Postoperative wound infection [Recovering/Resolving]
  - Hypotension [Unknown]
  - Rhinorrhoea [Recovered/Resolved]
  - Arthralgia [Unknown]
  - Eye infection [Not Recovered/Not Resolved]
  - Myalgia [Not Recovered/Not Resolved]
  - Recurrent cancer [Not Recovered/Not Resolved]
  - Nausea [Not Recovered/Not Resolved]
  - Mucosal inflammation [Unknown]
  - Abdominal pain upper [Not Recovered/Not Resolved]
  - Decreased appetite [Unknown]
  - Hot flush [Unknown]
  - Nasal obstruction [Recovered/Resolved]
  - Flushing [Unknown]
  - Peripheral swelling [Not Recovered/Not Resolved]
  - Weight decreased [Unknown]
  - Fatigue [Unknown]
  - Hyperhidrosis [Not Recovered/Not Resolved]
  - Erythema [Not Recovered/Not Resolved]

NARRATIVE: CASE EVENT DATE: 201306
